FAERS Safety Report 13546008 (Version 3)
Quarter: 2017Q2

REPORT INFORMATION
  Report Type: Spontaneous
  Country: PT (occurrence: PT)
  Receive Date: 20170515
  Receipt Date: 20170628
  Transmission Date: 20170830
  Serious: Yes (Hospitalization, Other)
  Sender: FDA-Public Use
  Company Number: PT-TEVA-767106ISR

PATIENT
  Age: 17 Year
  Sex: Male

DRUGS (3)
  1. SERTRALINE [Suspect]
     Active Substance: SERTRALINE HYDROCHLORIDE
     Indication: DEPRESSION
     Dosage: 25 MILLIGRAM DAILY;
     Route: 048
  2. SERTRALINE [Interacting]
     Active Substance: SERTRALINE HYDROCHLORIDE
     Indication: BACK PAIN
     Dosage: 1200 MILLIGRAM DAILY;
     Route: 048
  3. IBUPROFEN. [Interacting]
     Active Substance: IBUPROFEN
     Route: 065

REACTIONS (5)
  - Pain [Unknown]
  - Contusion [Unknown]
  - Off label use [Unknown]
  - Intermittent claudication [Recovered/Resolved]
  - Drug interaction [Unknown]
